FAERS Safety Report 10621445 (Version 2)
Quarter: 2014Q4

REPORT INFORMATION
  Report Type: Spontaneous
  Country: DE (occurrence: DE)
  Receive Date: 20141203
  Receipt Date: 20141223
  Transmission Date: 20150529
  Serious: Yes (Other)
  Sender: FDA-Public Use
  Company Number: DE-BEH-2014046866

PATIENT
  Sex: Female

DRUGS (2)
  1. INTRAVENOUS IMMUNOGLOBULINS [Suspect]
     Active Substance: HUMAN IMMUNOGLOBULIN G
     Indication: ORAL LICHEN PLANUS
  2. ACITRETIN. [Suspect]
     Active Substance: ACITRETIN
     Indication: ORAL LICHEN PLANUS

REACTIONS (2)
  - Leukopenia [Unknown]
  - Drug effect incomplete [Unknown]
